FAERS Safety Report 22533196 (Version 1)
Quarter: 2023Q2

REPORT INFORMATION
  Report Type: Spontaneous
  Country: US (occurrence: US)
  Receive Date: 20230607
  Receipt Date: 20230607
  Transmission Date: 20230722
  Serious: Yes (Other)
  Sender: FDA-Public Use
  Company Number: US-INCYTE CORPORATION-2023IN005860

PATIENT

DRUGS (5)
  1. JAKAFI [Suspect]
     Active Substance: RUXOLITINIB
     Indication: Chronic graft versus host disease
     Dosage: 10 MILLIGRAM, BID
     Route: 065
  2. PREDNISONE [Concomitant]
     Active Substance: PREDNISONE
     Indication: Chronic graft versus host disease
     Dosage: DAILY 5-10MG FOR OVER 10 YEARS
     Route: 065
  3. TACROLIMUS [Concomitant]
     Active Substance: TACROLIMUS
     Indication: Chronic graft versus host disease
     Dosage: DAILY 1.5-2MG FOR OVER 10 YEARS
     Route: 065
  4. NIACINAMIDE [Concomitant]
     Active Substance: NIACINAMIDE
     Indication: Prophylaxis
     Dosage: ADDED 3 YEARS BEFORE PRESENTATION
     Route: 065
  5. ACITRETIN [Concomitant]
     Active Substance: ACITRETIN
     Indication: Prophylaxis
     Dosage: ADDED 1 YEAR BEFORE PRESENTATION
     Route: 065

REACTIONS (2)
  - Squamous cell carcinoma of skin [Unknown]
  - Metastases to lymph nodes [Unknown]
